FAERS Safety Report 9579122 (Version 1)
Quarter: 2013Q4

REPORT INFORMATION
  Report Type: Spontaneous
  Country: US (occurrence: US)
  Receive Date: 20131001
  Receipt Date: 20131001
  Transmission Date: 20140711
  Serious: No
  Sender: FDA-Public Use
  Company Number: US-AMGEN-USASP2013016574

PATIENT
  Age: 35 Year
  Sex: Male
  Weight: 88.44 kg

DRUGS (7)
  1. ENBREL [Suspect]
     Indication: RHEUMATOID ARTHRITIS
     Dosage: 50 MG, 2 TIMES/WK
     Route: 058
  2. METHOTREXATE [Concomitant]
     Dosage: 2.5 MG, UNK
  3. PREDNISONE [Concomitant]
     Dosage: 5 MG, UNK
  4. OXYCODONE [Concomitant]
     Dosage: 5 MG, UNK
  5. MULTIVITAMINS, PLAIN [Concomitant]
  6. FOLIC ACID [Concomitant]
     Dosage: 5 MG, UNK
  7. OMEGA 3                            /01334101/ [Concomitant]
     Dosage: 1000 MG, UNK

REACTIONS (1)
  - Drug ineffective [Unknown]
